FAERS Safety Report 20127411 (Version 10)
Quarter: 2022Q2

REPORT INFORMATION
  Report Type: Report from Study
  Country: CA (occurrence: CA)
  Receive Date: 20211129
  Receipt Date: 20220428
  Transmission Date: 20220720
  Serious: Yes (Hospitalization, Other)
  Sender: FDA-Public Use
  Company Number: CA-TAKEDA-2021TUS053720

PATIENT
  Age: 3 Month
  Sex: Female
  Weight: 7 kg

DRUGS (11)
  1. VELAGLUCERASE ALFA [Suspect]
     Active Substance: VELAGLUCERASE ALFA
     Indication: Gaucher^s disease
     Dosage: 168 INTERNATIONAL UNIT, 1/WEEK
     Route: 050
     Dates: start: 20210728
  2. VELAGLUCERASE ALFA [Suspect]
     Active Substance: VELAGLUCERASE ALFA
     Dosage: 60 INTERNATIONAL UNIT/KILOGRAM, 1/WEEK
     Route: 050
     Dates: start: 20210728
  3. VELAGLUCERASE ALFA [Suspect]
     Active Substance: VELAGLUCERASE ALFA
     Dosage: 60 MICROGRAM/KILOGRAM, 1/WEEK
     Route: 050
     Dates: start: 20210728
  4. VELAGLUCERASE ALFA [Suspect]
     Active Substance: VELAGLUCERASE ALFA
     Dosage: 60 INTERNATIONAL UNIT/KILOGRAM, 1/WEEK
     Route: 050
     Dates: start: 20210728
  5. VELAGLUCERASE ALFA [Suspect]
     Active Substance: VELAGLUCERASE ALFA
     Dosage: 60 MICROGRAM/KILOGRAM, 1/WEEK
     Route: 050
     Dates: start: 20210728
  6. VELAGLUCERASE ALFA [Suspect]
     Active Substance: VELAGLUCERASE ALFA
     Dosage: 1 DOSAGE FORM
     Route: 050
     Dates: start: 20210728
  7. VELAGLUCERASE ALFA [Suspect]
     Active Substance: VELAGLUCERASE ALFA
     Dosage: 1 DOSAGE FORM
     Route: 050
     Dates: start: 20210728
  8. VELAGLUCERASE ALFA [Suspect]
     Active Substance: VELAGLUCERASE ALFA
     Dosage: 400 INTERNATIONAL UNIT, 3/MONTH
     Route: 050
     Dates: start: 20210728
  9. VELAGLUCERASE ALFA [Suspect]
     Active Substance: VELAGLUCERASE ALFA
     Dosage: 400 INTERNATIONAL UNIT, Q2WEEKS
     Route: 042
     Dates: start: 20210728
  10. AMBROXOL [Concomitant]
     Active Substance: AMBROXOL
     Indication: Seizure
     Dosage: UNK
     Route: 065
  11. KEPPRA [Concomitant]
     Active Substance: LEVETIRACETAM
     Indication: Seizure
     Dosage: UNK
     Route: 065

REACTIONS (13)
  - Sepsis [Recovering/Resolving]
  - Seizure [Unknown]
  - Vascular device infection [Unknown]
  - Hepatic enzyme increased [Recovering/Resolving]
  - Infusion site haemorrhage [Unknown]
  - Cough [Unknown]
  - Weight increased [Not Recovered/Not Resolved]
  - Blood pressure increased [Unknown]
  - Infusion related reaction [Unknown]
  - Blood pressure abnormal [Unknown]
  - Central venous catheterisation [Unknown]
  - Central venous catheter removal [Unknown]
  - Medication error [Unknown]

NARRATIVE: CASE EVENT DATE: 20210101
